FAERS Safety Report 8177669-1 (Version None)
Quarter: 2012Q1

REPORT INFORMATION
  Report Type: 
  Country: None (occurrence: None)
  Receive Date: 20120301
  Receipt Date: 20120221
  Transmission Date: 20120608
  Serious: Yes (Hospitalization)
  Sender: FDA-Public Use
  Company Number: CL-ROCHE-1042308

PATIENT
  Sex: Male

DRUGS (1)
  1. MIRCERA [Suspect]
     Indication: ANAEMIA
     Route: 058
     Dates: start: 20101220

REACTIONS (2)
  - PYREXIA [None]
  - BLOOD INSULIN INCREASED [None]
